FAERS Safety Report 6425073-6 (Version None)
Quarter: 2009Q4

REPORT INFORMATION
  Report Type: 
  Country: None (occurrence: None)
  Receive Date: 20091103
  Receipt Date: 20091022
  Transmission Date: 20100525
  Serious: Yes (Other)
  Sender: FDA-Public Use
  Company Number: US-PFIZER INC-2009288158

PATIENT
  Sex: Female

DRUGS (2)
  1. LIPITOR [Suspect]
  2. XANAX [Suspect]

REACTIONS (2)
  - FEELING ABNORMAL [None]
  - INTERVERTEBRAL DISC PROTRUSION [None]
